FAERS Safety Report 4903487-0 (Version None)
Quarter: 2006Q1

REPORT INFORMATION
  Report Type: 
  Country: None (occurrence: None)
  Receive Date: 20060206
  Receipt Date: 20060206
  Transmission Date: 20060701
  Serious: No
  Sender: FDA-Public Use
  Company Number: None

PATIENT
  Age: 53 Year
  Sex: Male
  Weight: 123 kg

DRUGS (1)
  1. VITAMIN B-12 [Suspect]
     Indication: VITAMIN B12 DEFICIENCY
     Dosage: 1000 MCG IM X 1
     Route: 030

REACTIONS (1)
  - RASH [None]
